FAERS Safety Report 5413890-0 (Version None)
Quarter: 2007Q3

REPORT INFORMATION
  Report Type: 
  Country: None (occurrence: None)
  Receive Date: 20070810
  Receipt Date: 20070802
  Transmission Date: 20080115
  Serious: Yes (Death)
  Sender: FDA-Public Use
  Company Number: 430007E07ITA

PATIENT
  Age: 72 Year
  Sex: Male

DRUGS (3)
  1. NOVANTRONE [Suspect]
     Dosage: 21 MG, INTRAVENOUS (NOT OTHERWISE SPECIFIED)
     Route: 042
     Dates: start: 20070618, end: 20070618
  2. CYTARABINE [Suspect]
     Dosage: 700 MG, INTRAVENOUS (NOT OTHERWISE SPECIFIED)
     Route: 042
     Dates: start: 20070608, end: 20070614
  3. ETOPOSIDE [Suspect]
     Dosage: 30 MG, INTRAVENOUS (NOT OTHERWISE SPECIFIED)
     Route: 042
     Dates: start: 20070608, end: 20070610

REACTIONS (1)
  - ENCEPHALITIS [None]
